FAERS Safety Report 4365768-1 (Version None)
Quarter: 2004Q2

REPORT INFORMATION
  Report Type: 
  Country: None (occurrence: None)
  Receive Date: 20040520
  Receipt Date: 20040511
  Transmission Date: 20050107
  Serious: Yes (Life-Threatening)
  Sender: FDA-Public Use
  Company Number: 2004024853

PATIENT
  Age: 61 Year
  Sex: Male
  Weight: 50 kg

DRUGS (6)
  1. VFEND [Suspect]
     Indication: PNEUMONIA ASPERGILLUS
     Dosage: (UNK, 1 IN 1 D), INTRAVENOUS;   400 MG (UNK, 1 IN 1 D), ORAL
     Route: 042
     Dates: start: 20040307, end: 20040101
  2. VFEND [Suspect]
     Indication: PNEUMONIA ASPERGILLUS
     Dosage: (UNK, 1 IN 1 D), INTRAVENOUS;   400 MG (UNK, 1 IN 1 D), ORAL
     Route: 042
     Dates: start: 20040401
  3. AMPHOTERICIN B [Concomitant]
  4. CASPOFUNGIN ACETATE (CASPOFUNGIN ACETATE) [Concomitant]
  5. PAROXETINE HCL [Concomitant]
  6. ALLOPURINOL [Concomitant]

REACTIONS (4)
  - CARDIAC FAILURE [None]
  - EJECTION FRACTION DECREASED [None]
  - GRAFT VERSUS HOST DISEASE [None]
  - PNEUMONIA ASPERGILLUS [None]
